FAERS Safety Report 18995624 (Version 1)
Quarter: 2021Q1

REPORT INFORMATION
  Report Type: Spontaneous
  Country: US (occurrence: US)
  Receive Date: 20210311
  Receipt Date: 20210311
  Transmission Date: 20210420
  Serious: No
  Sender: FDA-Public Use
  Company Number: US-ALLERGAN-2029124US

PATIENT
  Age: 48 Year
  Sex: Female

DRUGS (2)
  1. VIIBRYD [Suspect]
     Active Substance: VILAZODONE HYDROCHLORIDE
     Indication: DEPRESSION
     Dosage: 40 MG
     Route: 048
     Dates: end: 2018
  2. VIIBRYD [Suspect]
     Active Substance: VILAZODONE HYDROCHLORIDE
     Dosage: 20 MG
     Route: 048
     Dates: start: 2018

REACTIONS (4)
  - Euphoric mood [Recovered/Resolved]
  - Compulsive shopping [Recovered/Resolved]
  - Inappropriate affect [Recovered/Resolved]
  - Mania [Unknown]

NARRATIVE: CASE EVENT DATE: 2018
